FAERS Safety Report 5034064-1 (Version None)
Quarter: 2006Q2

REPORT INFORMATION
  Report Type: 
  Country: None (occurrence: None)
  Receive Date: 20060622
  Receipt Date: 20060609
  Transmission Date: 20061013
  Serious: Yes (Hospitalization, Disabling, Other)
  Sender: FDA-Public Use
  Company Number: 2006-01423

PATIENT
  Age: 69 Year
  Sex: Male

DRUGS (11)
  1. VELCADE [Suspect]
     Indication: MULTIPLE MYELOMA
     Dates: end: 20060401
  2. THALOMID [Suspect]
     Indication: MULTIPLE MYELOMA
     Dosage: 100.00 MG, ORAL
     Route: 048
     Dates: start: 20051101, end: 20060401
  3. DEXAMETHASONE [Suspect]
     Indication: MULTIPLE MYELOMA
     Dates: end: 20060401
  4. ACYCLOVIR [Concomitant]
  5. ACETYLSALICYLIC ACID SRT [Concomitant]
  6. LISINOPRIL [Concomitant]
  7. COUMADIN [Concomitant]
  8. LIPITOR [Concomitant]
  9. VORICONAZOLE (VORICONAZOLE) [Concomitant]
  10. FOLIC ACID [Concomitant]
  11. PLAVIX [Concomitant]

REACTIONS (12)
  - ABASIA [None]
  - ASTHENIA [None]
  - BLOOD ALBUMIN DECREASED [None]
  - DYSSTASIA [None]
  - ECCHYMOSIS [None]
  - FALL [None]
  - FLUID OVERLOAD [None]
  - HAEMOGLOBIN DECREASED [None]
  - OEDEMA PERIPHERAL [None]
  - PAIN [None]
  - THROMBOCYTOPENIA [None]
  - WEIGHT INCREASED [None]
